FAERS Safety Report 6428827-5 (Version None)
Quarter: 2009Q4

REPORT INFORMATION
  Report Type: 
  Country: None (occurrence: None)
  Receive Date: 20091104
  Receipt Date: 20091104
  Transmission Date: 20100525
  Serious: Yes (Life-Threatening)
  Sender: FDA-Public Use
  Company Number: None

PATIENT
  Age: 39 Year
  Sex: Male
  Weight: 90.7194 kg

DRUGS (1)
  1. TARGET BRAND OF CREST PRO-HEALTH UNKNOWN UNKNOWN [Suspect]
     Indication: DENTAL DISORDER PROPHYLAXIS
     Dosage: GARGLE PRN
     Dates: start: 20091028, end: 20091103

REACTIONS (1)
  - ANAPHYLACTIC REACTION [None]
